FAERS Safety Report 21226544 (Version 1)
Quarter: 2022Q3

REPORT INFORMATION
  Report Type: Spontaneous
  Country: CH (occurrence: CH)
  Receive Date: 20220818
  Receipt Date: 20220818
  Transmission Date: 20221026
  Serious: Yes (Other)
  Sender: FDA-Public Use
  Company Number: CH-SUN PHARMACEUTICAL INDUSTRIES LTD-2022RR-348438

PATIENT
  Age: 39 Year
  Sex: Female

DRUGS (7)
  1. LOPERAMIDE [Suspect]
     Active Substance: LOPERAMIDE
     Indication: Depression
     Dosage: 40 MILLIGRAM, DAILY
     Route: 065
  2. LOPERAMIDE [Suspect]
     Active Substance: LOPERAMIDE
     Indication: Anxiety
     Dosage: 60 MILLIGRAM, DAILY
     Route: 065
  3. XYLOMETAZOLINE [Suspect]
     Active Substance: XYLOMETAZOLINE
     Indication: Rhinorrhoea
     Dosage: 10 MILLILITER, DAILY
     Route: 065
  4. VENLAFAXINE [Suspect]
     Active Substance: VENLAFAXINE HYDROCHLORIDE
     Indication: Depression
     Dosage: UNK
     Route: 065
  5. VENLAFAXINE [Suspect]
     Active Substance: VENLAFAXINE HYDROCHLORIDE
     Indication: Anxiety
  6. ESCITALOPRAM [Suspect]
     Active Substance: ESCITALOPRAM OXALATE
     Indication: Depression
     Dosage: UNK
     Route: 065
  7. ESCITALOPRAM [Suspect]
     Active Substance: ESCITALOPRAM OXALATE
     Indication: Anxiety

REACTIONS (9)
  - Substance use disorder [Unknown]
  - Irritability [Unknown]
  - Mydriasis [Unknown]
  - Rhinorrhoea [Unknown]
  - Drug dependence [Unknown]
  - Overdose [Unknown]
  - Diarrhoea [Unknown]
  - Refusal of treatment by patient [Unknown]
  - Electrocardiogram QT prolonged [Unknown]
